FAERS Safety Report 9298645 (Version 1)
Quarter: 2013Q2

REPORT INFORMATION
  Report Type: Spontaneous
  Country: BR (occurrence: BR)
  Receive Date: 20130520
  Receipt Date: 20130520
  Transmission Date: 20140414
  Serious: Yes (Hospitalization)
  Sender: FDA-Public Use
  Company Number: BR-ASTRAZENECA-2013SE33559

PATIENT
  Age: 724 Month
  Sex: Male
  Weight: 67 kg

DRUGS (3)
  1. CRESTOR [Suspect]
     Indication: ATHEROSCLEROSIS PROPHYLAXIS
     Route: 048
     Dates: start: 2007
  2. SELOZOK [Suspect]
     Route: 048
     Dates: start: 201101
  3. ZETIA [Concomitant]
     Dates: start: 2007

REACTIONS (2)
  - Cardiac disorder [Recovered/Resolved]
  - Off label use [Not Recovered/Not Resolved]
